FAERS Safety Report 23416398 (Version 3)
Quarter: 2024Q1

REPORT INFORMATION
  Report Type: Spontaneous
  Country: SE (occurrence: SE)
  Receive Date: 20240118
  Receipt Date: 20240223
  Transmission Date: 20240410
  Serious: Yes (Other)
  Sender: FDA-Public Use
  Company Number: SE-PFIZER INC-202400008782

PATIENT
  Sex: Female

DRUGS (1)
  1. ESTRADIOL [Suspect]
     Active Substance: ESTRADIOL
     Dosage: UNK
     Dates: start: 2020

REACTIONS (4)
  - Injury associated with device [Unknown]
  - Device physical property issue [Unknown]
  - Vulvovaginal pain [Unknown]
  - Vaginal haemorrhage [Unknown]
